FAERS Safety Report 18145084 (Version 1)
Quarter: 2020Q3

REPORT INFORMATION
  Report Type: Spontaneous
  Country: US (occurrence: US)
  Receive Date: 20200813
  Receipt Date: 20200813
  Transmission Date: 20201103
  Serious: No
  Sender: FDA-Public Use
  Company Number: US-GLENMARK PHARMACEUTICALS-2020GMK048464

PATIENT

DRUGS (2)
  1. DOXYCYCLINE HYCLATE. [Concomitant]
     Active Substance: DOXYCYCLINE HYCLATE
     Indication: ANTIBIOTIC THERAPY
     Dosage: UNK
     Route: 065
  2. CLOBETASOL PROPIONATE OINTMENT USP [Suspect]
     Active Substance: CLOBETASOL PROPIONATE
     Indication: PRODUCT USED FOR UNKNOWN INDICATION
     Dosage: UNK, BID
     Route: 061
     Dates: start: 20200607, end: 202007

REACTIONS (2)
  - No adverse event [Unknown]
  - Product use issue [Unknown]

NARRATIVE: CASE EVENT DATE: 2020
